FAERS Safety Report 23070698 (Version 1)
Quarter: 2023Q4

REPORT INFORMATION
  Report Type: Spontaneous
  Country: FR (occurrence: FR)
  Receive Date: 20231016
  Receipt Date: 20231016
  Transmission Date: 20240110
  Serious: Yes (Hospitalization)
  Sender: FDA-Public Use
  Company Number: FR-PHARMAAND-2023PHR00142

PATIENT
  Age: 35 Year
  Sex: Male
  Weight: 70 kg

DRUGS (15)
  1. PEGASYS [Suspect]
     Active Substance: PEGINTERFERON ALFA-2A
     Indication: Chimerism
     Dosage: 45 MICROGRAM EVERY 1 WEEK(S)
     Route: 058
     Dates: start: 20230526, end: 20230717
  2. VALACYCLOVIR HYDROCHLORIDE [Concomitant]
     Active Substance: VALACYCLOVIR HYDROCHLORIDE
  3. TRAMADOL HYDROCHLORIDE [Concomitant]
     Active Substance: TRAMADOL HYDROCHLORIDE
  4. RITUXIMAB [Concomitant]
     Active Substance: RITUXIMAB
  5. LEUCOVORIN CALCIUM [Concomitant]
     Active Substance: LEUCOVORIN CALCIUM
  6. BACTRIM [Concomitant]
     Active Substance: SULFAMETHOXAZOLE\TRIMETHOPRIM
  7. PANTOPRAZOLE [Concomitant]
     Active Substance: PANTOPRAZOLE
  8. ATOVAQUONE [Concomitant]
     Active Substance: ATOVAQUONE
  9. FLUCONAZOLE [Concomitant]
     Active Substance: FLUCONAZOLE
  10. TACROLIMUS [Concomitant]
     Active Substance: TACROLIMUS
  11. PENICILLIN V [Concomitant]
     Active Substance: PENICILLIN V
  12. URSODIOL [Concomitant]
     Active Substance: URSODIOL
  13. ZOPICLONE [Concomitant]
     Active Substance: ZOPICLONE
  14. NEORAL [Concomitant]
     Active Substance: CYCLOSPORINE
  15. PRIMPERAN [Concomitant]
     Active Substance: METOCLOPRAMIDE HYDROCHLORIDE

REACTIONS (2)
  - Thrombotic microangiopathy [Recovering/Resolving]
  - Off label use [Unknown]

NARRATIVE: CASE EVENT DATE: 20230701
